FAERS Safety Report 5358105-7 (Version None)
Quarter: 2007Q2

REPORT INFORMATION
  Report Type: 
  Country: None (occurrence: None)
  Receive Date: 20070530
  Receipt Date: 20070207
  Transmission Date: 20071010
  Serious: Yes (Hospitalization, Other)
  Sender: FDA-Public Use
  Company Number: US200702001357

PATIENT
  Age: 49 Year
  Sex: Male

DRUGS (5)
  1. ZYPREXA [Suspect]
     Indication: SLEEP DISORDER
     Dosage: 15 MG, DAILY (1/D), UNK
     Dates: start: 20050101
  2. LUNESTA [Concomitant]
  3. NASACORT [Concomitant]
  4. MULTIPLE VITAMINS (ASCORBIC ACID, ERGOCALCIFEROL, FOLIC ACID, RETINOL, [Concomitant]
  5. C-VITAMIN (ASCORBIC ACID) [Concomitant]

REACTIONS (6)
  - DRY MOUTH [None]
  - HEPATIC FUNCTION ABNORMAL [None]
  - INSOMNIA [None]
  - POLLAKIURIA [None]
  - TREMOR [None]
  - WEIGHT INCREASED [None]
